FAERS Safety Report 15896322 (Version 1)
Quarter: 2019Q1

REPORT INFORMATION
  Report Type: Spontaneous
  Country: DE (occurrence: DE)
  Receive Date: 20190131
  Receipt Date: 20190131
  Transmission Date: 20190417
  Serious: Yes (Hospitalization, Other)
  Sender: FDA-Public Use
  Company Number: DE-TEVA-2019-DE-1005473

PATIENT
  Age: 61 Year
  Sex: Female
  Weight: 60 kg

DRUGS (2)
  1. PREDNISOLON [Suspect]
     Active Substance: PREDNISOLONE
     Dosage: 10 MILLIGRAM DAILY; 10MG/DAY
     Route: 048
  2. GLIVEC [Suspect]
     Active Substance: IMATINIB MESYLATE
     Indication: HYPEREOSINOPHILIC SYNDROME
     Dosage: 200 MILLIGRAM DAILY;
     Route: 048
     Dates: start: 20030219

REACTIONS (2)
  - Deep vein thrombosis [Recovered/Resolved]
  - Supraventricular tachycardia [Recovered/Resolved]

NARRATIVE: CASE EVENT DATE: 20030225
